FAERS Safety Report 25788432 (Version 3)
Quarter: 2025Q3

REPORT INFORMATION
  Report Type: Spontaneous
  Country: US (occurrence: US)
  Receive Date: 20250910
  Receipt Date: 20250929
  Transmission Date: 20251020
  Serious: Yes (Hospitalization)
  Sender: PFIZER
  Company Number: US-PFIZER INC-202500178155

PATIENT
  Age: 64 Year
  Sex: Female

DRUGS (2)
  1. IBRANCE [Suspect]
     Active Substance: PALBOCICLIB
     Indication: Breast cancer
     Route: 048
     Dates: start: 20250820, end: 20250911
  2. ITOVEBI [Concomitant]
     Active Substance: INAVOLISIB

REACTIONS (4)
  - Hyperglycaemia [Recovering/Resolving]
  - Musculoskeletal pain [Recovering/Resolving]
  - Blood test abnormal [Recovering/Resolving]
  - White blood cell count decreased [Unknown]

NARRATIVE: CASE EVENT DATE: 20250828
